FAERS Safety Report 6199857-6 (Version None)
Quarter: 2009Q2

REPORT INFORMATION
  Report Type: 
  Country: None (occurrence: None)
  Receive Date: 20090522
  Receipt Date: 20090514
  Transmission Date: 20091009
  Serious: Yes (Other)
  Sender: FDA-Public Use
  Company Number: US-PFIZER INC-2009215163

PATIENT
  Sex: Female
  Weight: 71 kg

DRUGS (9)
  1. LIPITOR [Suspect]
     Indication: BLOOD CHOLESTEROL INCREASED
     Dosage: 40 MG, 1X/DAY
  2. LISINOPRIL [Concomitant]
     Dosage: UNK
  3. AMLODIPINE BESILATE [Concomitant]
     Dosage: UNK
  4. PLAVIX [Concomitant]
     Dosage: UNK
  5. ASPIRIN [Concomitant]
     Dosage: UNK
  6. METOPROLOL [Concomitant]
     Dosage: UNK
  7. BRIMONIDINE [Concomitant]
     Dosage: UNK
  8. COSOPT [Concomitant]
     Dosage: UNK
  9. VITAMINS [Concomitant]
     Dosage: UNK

REACTIONS (3)
  - ARTERIAL STENT INSERTION [None]
  - COUGH [None]
  - UPPER RESPIRATORY TRACT INFECTION [None]
